FAERS Safety Report 18853511 (Version 1)
Quarter: 2021Q1

REPORT INFORMATION
  Report Type: Spontaneous
  Country: DE (occurrence: DE)
  Receive Date: 20210205
  Receipt Date: 20210205
  Transmission Date: 20210420
  Serious: Yes (Hospitalization, Other)
  Sender: FDA-Public Use
  Company Number: DE-SA-2021SA035090

PATIENT
  Age: 49 Year
  Sex: Female

DRUGS (3)
  1. LEMTRADA [Suspect]
     Active Substance: ALEMTUZUMAB
     Dosage: 12 MG, QD
     Dates: start: 201612, end: 201612
  2. LEMTRADA [Suspect]
     Active Substance: ALEMTUZUMAB
     Indication: MULTIPLE SCLEROSIS
     Dosage: 12 MG, QD
     Dates: start: 201512, end: 201512
  3. DOCITON [Suspect]
     Active Substance: PROPRANOLOL HYDROCHLORIDE

REACTIONS (2)
  - Basedow^s disease [Recovered/Resolved with Sequelae]
  - Endocrine ophthalmopathy [Not Recovered/Not Resolved]

NARRATIVE: CASE EVENT DATE: 20201111
